FAERS Safety Report 4657286-8 (Version None)
Quarter: 2005Q2

REPORT INFORMATION
  Report Type: 
  Country: None (occurrence: None)
  Receive Date: 20050506
  Receipt Date: 20050427
  Transmission Date: 20051028
  Serious: Yes (Other)
  Sender: FDA-Public Use
  Company Number: 230830K05USA

PATIENT
  Age: 64 Year
  Sex: Female

DRUGS (1)
  1. REBIF (INTERFERON BETA) [Suspect]
     Indication: MULTIPLE SCLEROSIS
     Dosage: 44 MCG, 3 IN 1 WEEKS, SUBCUTANEOUS
     Route: 058
     Dates: start: 20030922

REACTIONS (13)
  - BRONCHIAL CARCINOMA [None]
  - JOINT LOCK [None]
  - LUNG CARCINOMA CELL TYPE UNSPECIFIED STAGE IV [None]
  - LYMPHADENOPATHY [None]
  - METASTASES TO CENTRAL NERVOUS SYSTEM [None]
  - METASTASES TO SPINE [None]
  - MUSCULOSKELETAL STIFFNESS [None]
  - NON-SMALL CELL LUNG CANCER [None]
  - PAIN [None]
  - PAIN IN EXTREMITY [None]
  - SENSORY DISTURBANCE [None]
  - WALKING AID USER [None]
  - WHEELCHAIR USER [None]
